FAERS Safety Report 8457057-0 (Version None)
Quarter: 2012Q2

REPORT INFORMATION
  Report Type: 
  Country: None (occurrence: None)
  Receive Date: 20120621
  Receipt Date: 20120611
  Transmission Date: 20120825
  Serious: Yes (Other)
  Sender: FDA-Public Use
  Company Number: US-ABBOTT-12P-163-0944418-00

PATIENT
  Age: 18 Year
  Sex: Female

DRUGS (6)
  1. INTELENCE [Suspect]
     Indication: ANTIVIRAL TREATMENT
     Route: 048
     Dates: start: 20111115, end: 20120516
  2. RETROVIR [Suspect]
     Indication: ANTIVIRAL TREATMENT
     Route: 042
     Dates: start: 20120515, end: 20120516
  3. PREZISTA [Suspect]
     Indication: ANTIVIRAL TREATMENT
     Route: 048
     Dates: start: 20111115, end: 20120516
  4. NORVIR [Suspect]
     Indication: ANTIVIRAL TREATMENT
     Route: 048
     Dates: start: 20111115, end: 20120516
  5. EPZICOM [Suspect]
     Indication: ANTIVIRAL TREATMENT
     Route: 048
     Dates: start: 20111115, end: 20120516
  6. ISENTRESS [Suspect]
     Indication: ANTIVIRAL TREATMENT
     Route: 048
     Dates: start: 20111115, end: 20120516

REACTIONS (1)
  - AMNIOTIC FLUID VOLUME DECREASED [None]
